FAERS Safety Report 25315475 (Version 1)
Quarter: 2025Q2

REPORT INFORMATION
  Report Type: Spontaneous
  Country: GB (occurrence: GB)
  Receive Date: 20250514
  Receipt Date: 20250514
  Transmission Date: 20250717
  Serious: Yes (Hospitalization, Disabling, Other)
  Sender: ORGANON
  Company Number: None

PATIENT
  Sex: Female

DRUGS (19)
  1. ALENDRONATE SODIUM [Suspect]
     Active Substance: ALENDRONATE SODIUM
  2. MIRTAZAPINE [Suspect]
     Active Substance: MIRTAZAPINE
  3. ACETAMINOPHEN [Suspect]
     Active Substance: ACETAMINOPHEN
     Indication: Blood cholesterol abnormal
  4. CALCIUM CARBONATE [Suspect]
     Active Substance: CALCIUM CARBONATE
  5. CALCIUM CARBONATE [Suspect]
     Active Substance: CALCIUM CARBONATE
  6. ASPIRIN [Suspect]
     Active Substance: ASPIRIN
  7. ATORVASTATIN [Suspect]
     Active Substance: ATORVASTATIN
  8. CLOPIDOGREL [Suspect]
     Active Substance: CLOPIDOGREL BISULFATE
  9. IBUPROFEN [Suspect]
     Active Substance: IBUPROFEN
  10. LANSOPRAZOLE [Suspect]
     Active Substance: LANSOPRAZOLE
  11. ACETAMINOPHEN [Suspect]
     Active Substance: ACETAMINOPHEN
  12. RAMIPRIL [Suspect]
     Active Substance: RAMIPRIL
  13. SIMVASTATIN [Concomitant]
     Active Substance: SIMVASTATIN
  14. ALENDRONATE SODIUM [Concomitant]
     Active Substance: ALENDRONATE SODIUM
  15. CALCIUM CARBONATE\CHOLECALCIFEROL [Concomitant]
     Active Substance: CALCIUM CARBONATE\CHOLECALCIFEROL
  16. CETIRIZINE [Concomitant]
     Active Substance: CETIRIZINE HYDROCHLORIDE
  17. CETIRIZINE [Concomitant]
     Active Substance: CETIRIZINE HYDROCHLORIDE
  18. CITALOPRAM [Concomitant]
     Active Substance: CITALOPRAM
  19. LANTUS [Concomitant]
     Active Substance: INSULIN GLARGINE

REACTIONS (30)
  - Asthenia [Unknown]
  - Parkinson^s disease [Unknown]
  - Muscle twitching [Unknown]
  - Osteitis [Unknown]
  - Labyrinthitis [Not Recovered/Not Resolved]
  - Arthritis [Not Recovered/Not Resolved]
  - Balance disorder [Unknown]
  - Arthralgia [Unknown]
  - Malaise [Not Recovered/Not Resolved]
  - Tooth fracture [Not Recovered/Not Resolved]
  - Loose tooth [Not Recovered/Not Resolved]
  - Chronic fatigue syndrome [Unknown]
  - Coordination abnormal [Unknown]
  - Fatigue [Unknown]
  - Blood calcium decreased [Not Recovered/Not Resolved]
  - Constipation [Not Recovered/Not Resolved]
  - Fall [Unknown]
  - Nausea [Unknown]
  - Coeliac disease [Unknown]
  - General physical health deterioration [Not Recovered/Not Resolved]
  - Asthenia [Unknown]
  - Noninfective gingivitis [Unknown]
  - Mobility decreased [Not Recovered/Not Resolved]
  - Angiopathy [Unknown]
  - Dyspepsia [Unknown]
  - Agitation [Unknown]
  - Abdominal discomfort [Unknown]
  - Flank pain [Unknown]
  - Oedema peripheral [Unknown]
  - Diarrhoea [Unknown]

NARRATIVE: CASE EVENT DATE: 20210101
